FAERS Safety Report 22625954 (Version 1)
Quarter: 2023Q2

REPORT INFORMATION
  Report Type: Spontaneous
  Country: US (occurrence: US)
  Receive Date: 20230621
  Receipt Date: 20230621
  Transmission Date: 20230721
  Serious: Yes (Other)
  Sender: FDA-Public Use
  Company Number: US-MYLANLABS-2023M1064978

PATIENT
  Sex: Female
  Weight: 82.5 kg

DRUGS (2)
  1. GEODON [Suspect]
     Active Substance: ZIPRASIDONE HYDROCHLORIDE\ZIPRASIDONE MESYLATE
     Indication: Major depression
     Dosage: UNK, FOR OVER TWO AND HALF YEARS.
     Route: 065
  2. GEODON [Suspect]
     Active Substance: ZIPRASIDONE HYDROCHLORIDE\ZIPRASIDONE MESYLATE
     Indication: Bipolar disorder

REACTIONS (4)
  - Tardive dyskinesia [Not Recovered/Not Resolved]
  - Deep brain stimulation [Unknown]
  - Alopecia [Unknown]
  - Dopamine dysregulation syndrome [Unknown]
